FAERS Safety Report 16774374 (Version 1)
Quarter: 2019Q3

REPORT INFORMATION
  Report Type: Spontaneous
  Country: US (occurrence: US)
  Receive Date: 20190905
  Receipt Date: 20190905
  Transmission Date: 20191005
  Serious: No
  Sender: FDA-Public Use
  Company Number: US-LUPIN PHARMACEUTICALS INC.-2019-02068

PATIENT
  Age: 91 Year
  Sex: Female

DRUGS (1)
  1. AMLODIPINE BESYLATE TABLETS USP, 10 MG [Suspect]
     Active Substance: AMLODIPINE BESYLATE
     Indication: PRODUCT USED FOR UNKNOWN INDICATION
     Dosage: 10 MILLIGRAM, QD
     Route: 048

REACTIONS (4)
  - Head discomfort [Recovering/Resolving]
  - Fear-related avoidance of activities [Recovering/Resolving]
  - Dizziness [Recovering/Resolving]
  - Product substitution issue [Unknown]
